FAERS Safety Report 5054110-9 (Version None)
Quarter: 2006Q3

REPORT INFORMATION
  Report Type: 
  Country: None (occurrence: None)
  Receive Date: 20060713
  Receipt Date: 20060707
  Transmission Date: 20061208
  Serious: Yes (Death)
  Sender: FDA-Public Use
  Company Number: 2006070321

PATIENT
  Age: 74 Year
  Sex: Male
  Weight: 50 kg

DRUGS (11)
  1. INTRALIPID 20% [Suspect]
     Indication: PARENTERAL NUTRITION
     Dosage: 200 ML, 1 IN 1 D, INTRAVENOUS DRIP
     Route: 041
     Dates: start: 20060501, end: 20060508
  2. MEROPEN (MEROPENEM) (MEROPENEM) [Suspect]
     Indication: ANTIBIOTIC PROPHYLAXIS
     Dosage: SEE IMAGE
     Route: 041
     Dates: start: 20060407, end: 20060421
  3. MEROPEN (MEROPENEM) (MEROPENEM) [Suspect]
     Indication: ANTIBIOTIC PROPHYLAXIS
     Dosage: SEE IMAGE
     Route: 041
     Dates: start: 20060502, end: 20060511
  4. CLINDAMYCIN [Concomitant]
  5. FULCALIQ (SOLUTIONS FOR PARENTERAL NUTRITION) (MULTIVITAMINS, DEXTROSE [Concomitant]
  6. GRAMALIL (TIAPRIDE HYDROCHLORIDE) (TIAPRIDE) [Concomitant]
  7. PARIET (RABEPRAZOLE SODIUM) (RABEPRAZOLE) [Concomitant]
  8. RENIVACE (ENALAPRIL MALEATE) (ENALAPRIL) [Concomitant]
  9. NORVASC [Concomitant]
  10. MAGMITT (MAGNESIUM OXIDE) [Concomitant]
  11. THYRADIN S (LEVOTHYROXINE SODIUM) (LEVOTHYROXINE) [Concomitant]

REACTIONS (5)
  - ANAEMIA [None]
  - CARDIAC FAILURE ACUTE [None]
  - GASTROINTESTINAL HAEMORRHAGE [None]
  - MALNUTRITION [None]
  - THROMBOCYTOPENIA [None]
